FAERS Safety Report 11616368 (Version 1)
Quarter: 2015Q4

REPORT INFORMATION
  Report Type: Spontaneous
  Country: None (occurrence: US)
  Receive Date: 20151009
  Receipt Date: 20151009
  Transmission Date: 20160304
  Serious: Yes (Hospitalization, Disabling, Other)
  Sender: FDA-Public Use
  Company Number: US-NSR_02208_2015

PATIENT
  Sex: Male
  Weight: 73.26 kg

DRUGS (11)
  1. TRAMADOL. [Suspect]
     Active Substance: TRAMADOL
     Dosage: [AS NEEDED]
     Route: 048
     Dates: start: 20150421
  2. MAGNESIUM [Concomitant]
     Active Substance: MAGNESIUM
     Dosage: [2 TABLETS TWICE A DAY, 1 TABLET AT BEDTIME]
  3. PROZAC [Concomitant]
     Active Substance: FLUOXETINE HYDROCHLORIDE
     Route: 048
     Dates: start: 20150421
  4. REVATIO [Concomitant]
     Active Substance: SILDENAFIL CITRATE
  5. ASPIRIN. [Concomitant]
     Active Substance: ASPIRIN
     Dosage: [81 MG, DAILY]
  6. METOPROLOL TARTRATE. [Concomitant]
     Active Substance: METOPROLOL TARTRATE
  7. TRENTAL [Concomitant]
     Active Substance: PENTOXIFYLLINE
     Route: 048
  8. TRAMADOL. [Suspect]
     Active Substance: TRAMADOL
     Indication: PAIN
     Dosage: [AS NEEDED]
     Route: 048
  9. NEXIUM [Concomitant]
     Active Substance: ESOMEPRAZOLE MAGNESIUM
  10. PROCARDIA [Concomitant]
     Active Substance: NIFEDIPINE
  11. FLUOXETINE [Concomitant]
     Active Substance: FLUOXETINE HYDROCHLORIDE
     Dosage: [20 MG, DAILY]

REACTIONS (2)
  - Raynaud^s phenomenon [Unknown]
  - Scleroderma [Unknown]
